FAERS Safety Report 10132158 (Version 2)
Quarter: 2014Q2

REPORT INFORMATION
  Report Type: Report from Study
  Country: US (occurrence: US)
  Receive Date: 20140428
  Receipt Date: 20140528
  Transmission Date: 20141212
  Serious: Yes (Hospitalization)
  Sender: FDA-Public Use
  Company Number: US-JNJFOC-20140416897

PATIENT
  Age: 17 Year
  Sex: Female
  Weight: 60.5 kg

DRUGS (4)
  1. REMICADE [Suspect]
     Indication: COLITIS ULCERATIVE
     Route: 042
     Dates: start: 20131113, end: 20140217
  2. HUMIRA [Concomitant]
     Route: 065
     Dates: start: 20140331
  3. HUMIRA [Concomitant]
     Route: 065
     Dates: start: 20140319
  4. 6-MERCAPTOPURINE [Concomitant]
     Route: 065

REACTIONS (1)
  - Colitis ulcerative [Recovered/Resolved]
